FAERS Safety Report 5671739-5 (Version None)
Quarter: 2008Q1

REPORT INFORMATION
  Report Type: 
  Country: None (occurrence: None)
  Receive Date: 20080314
  Receipt Date: 20080305
  Transmission Date: 20080703
  Serious: Yes (Hospitalization)
  Sender: FDA-Public Use
  Company Number: 2008-00749

PATIENT
  Age: 67 Year
  Sex: Male

DRUGS (5)
  1. VELCADE [Suspect]
     Indication: MYELODYSPLASTIC SYNDROME
     Dosage: 1.3 MG,INTRAVENOUS
     Route: 042
     Dates: start: 20080129, end: 20080229
  2. REVLIMID [Suspect]
     Indication: MYELODYSPLASTIC SYNDROME
     Dosage: 10.00 MG, ORAL
     Route: 048
     Dates: start: 20080129, end: 20080303
  3. EXJADE [Concomitant]
  4. WELLBUTRIN [Concomitant]
  5. KLONOPIN [Concomitant]

REACTIONS (1)
  - CELLULITIS [None]
